FAERS Safety Report 5631840-9 (Version None)
Quarter: 2008Q1

REPORT INFORMATION
  Report Type: 
  Country: None (occurrence: None)
  Receive Date: 20080219
  Receipt Date: 20080219
  Transmission Date: 20080703
  Serious: Yes (Other)
  Sender: FDA-Public Use
  Company Number: None

PATIENT
  Sex: Female
  Weight: 83.0083 kg

DRUGS (6)
  1. AVASTIN [Suspect]
     Indication: GLIOBLASTOMA MULTIFORME
     Dosage: 839 MG Q2WEEKS IV BOLUS
     Route: 040
     Dates: start: 20071029, end: 20080121
  2. AVASTIN [Suspect]
  3. IRINOTECAN [Concomitant]
  4. ALOXI [Concomitant]
  5. DECADRON [Concomitant]
  6. ATROPINE [Concomitant]

REACTIONS (1)
  - SKIN DISORDER [None]
